FAERS Safety Report 9059075 (Version 1)
Quarter: 2013Q1

REPORT INFORMATION
  Report Type: Spontaneous
  Country: US (occurrence: US)
  Receive Date: 20130211
  Receipt Date: 20130211
  Transmission Date: 20140127
  Serious: No
  Sender: FDA-Public Use
  Company Number: US-BRISTOL-MYERS SQUIBB COMPANY-16756744

PATIENT
  Sex: Male

DRUGS (2)
  1. METFORMIN HCL [Suspect]
     Dosage: CUT IT BACK TO 100MG,1000MG BID
  2. LANTUS [Suspect]
     Dosage: 1DF:10U,LANTUS SOLOSTAR,10D AGO,AFR 4D 12U,AFR 4D 14U,JUN12-JUN,JUN-ONG,PARENTERAL,INJ SOLN100IU/ML
     Route: 058
     Dates: start: 201206

REACTIONS (1)
  - Blood glucose increased [Unknown]
